FAERS Safety Report 5244180-7 (Version None)
Quarter: 2007Q1

REPORT INFORMATION
  Report Type: 
  Country: None (occurrence: None)
  Receive Date: 20070222
  Receipt Date: 20070214
  Transmission Date: 20070707
  Serious: Yes (Other)
  Sender: FDA-Public Use
  Company Number: US-GLAXOSMITHKLINE-A0640319A

PATIENT
  Sex: Male

DRUGS (1)
  1. PAXIL [Suspect]
     Indication: DEPRESSION
     Dates: start: 19940101

REACTIONS (14)
  - ALCOHOLISM [None]
  - ANXIETY [None]
  - BIPOLAR DISORDER [None]
  - BOREDOM [None]
  - DEPRESSION [None]
  - FEELING GUILTY [None]
  - FEELING OF DESPAIR [None]
  - IMPULSIVE BEHAVIOUR [None]
  - INTENTIONAL SELF-INJURY [None]
  - IRRITABILITY [None]
  - LIBIDO INCREASED [None]
  - MOOD ALTERED [None]
  - RESTLESSNESS [None]
  - TENSION [None]
